FAERS Safety Report 8363361-7 (Version None)
Quarter: 2012Q2

REPORT INFORMATION
  Report Type: 
  Country: None (occurrence: None)
  Receive Date: 20120516
  Receipt Date: 20111215
  Transmission Date: 20120825
  Serious: Yes (Hospitalization)
  Sender: FDA-Public Use
  Company Number: US-ALEXION-A201101889

PATIENT

DRUGS (2)
  1. SOLIRIS [Suspect]
     Indication: PAROXYSMAL NOCTURNAL HAEMOGLOBINURIA
     Dosage: UNK
     Route: 042
  2. ANTIBIOTICS [Suspect]
     Indication: PNEUMONIA FUNGAL

REACTIONS (7)
  - HEPATOMEGALY [None]
  - VOMITING [None]
  - SPLENOMEGALY [None]
  - BLOOD IRON INCREASED [None]
  - CHOLELITHIASIS [None]
  - CHEST PAIN [None]
  - HEPATIC ENZYME INCREASED [None]
